FAERS Safety Report 10037991 (Version 1)
Quarter: 2014Q1

REPORT INFORMATION
  Report Type: Spontaneous
  Country: US (occurrence: None)
  Receive Date: 20140325
  Receipt Date: 20140325
  Transmission Date: 20141002
  Serious: Yes (Hospitalization)
  Sender: FDA-Public Use
  Company Number: None

PATIENT
  Age: 69 Year
  Sex: Male
  Weight: 96.8 kg

DRUGS (2)
  1. CARBOPLATIN [Suspect]
     Dates: end: 20131022
  2. PACLITAXEL (TAXOL) [Suspect]
     Dates: end: 20131022

REACTIONS (14)
  - Dysphagia [None]
  - Dyspepsia [None]
  - Hypophagia [None]
  - Dizziness [None]
  - Dehydration [None]
  - Tachycardia [None]
  - Aphagia [None]
  - Fluid intake reduced [None]
  - Dysphagia [None]
  - Atrial flutter [None]
  - Pneumonia aspiration [None]
  - Pleural effusion [None]
  - Tracheal fistula [None]
  - Arrhythmia [None]
